FAERS Safety Report 8356774-0 (Version None)
Quarter: 2012Q2

REPORT INFORMATION
  Report Type: 
  Country: None (occurrence: None)
  Receive Date: 20120511
  Receipt Date: 20120511
  Transmission Date: 20120825
  Serious: Yes (Hospitalization)
  Sender: FDA-Public Use
  Company Number: None

PATIENT
  Age: 53 Year
  Sex: Female
  Weight: 54.5 kg

DRUGS (4)
  1. PACLITAXEL [Suspect]
     Indication: URETHRAL CANCER
     Dosage: TAXOL 175MG/M2
     Dates: start: 20120329, end: 20120402
  2. CARBOPLATIN [Suspect]
     Indication: URETHRAL CANCER
     Dosage: CARBOAUC5
     Dates: start: 20120405, end: 20120409
  3. CARBOPLATIN [Suspect]
     Indication: URETHRAL CANCER
     Dosage: CARBOAUC5
     Dates: start: 20120329, end: 20120329
  4. RIDAFOROLIMUS [Suspect]
     Indication: URETHRAL CANCER
     Dosage: 10 MG PO DAYS 1-5; 8-12

REACTIONS (4)
  - MALIGNANT PLEURAL EFFUSION [None]
  - TACHYPNOEA [None]
  - DYSPNOEA [None]
  - PULMONARY EMBOLISM [None]
